FAERS Safety Report 9159786 (Version 1)
Quarter: 2013Q1

REPORT INFORMATION
  Report Type: Spontaneous
  Country: FR (occurrence: None)
  Receive Date: 20130219
  Receipt Date: 20130219
  Transmission Date: 20140127
  Serious: Yes (Hospitalization)
  Sender: FDA-Public Use
  Company Number: 2013FR0067

PATIENT
  Age: 2 Year
  Sex: Female
  Weight: 13.54 kg

DRUGS (4)
  1. KINERET (ANAKINRA), NOT AVAILABLE [Suspect]
     Indication: JUVENILE IDIOPATHIC ARTHRITIS
     Route: 058
     Dates: start: 20120528
  2. KARDEGIC (LYSINE ACETYLSALICYLATE) [Concomitant]
  3. ADVIL (IBUPROFEN) [Concomitant]
  4. DOLIPRANE (ACETAMINOPHEN) [Concomitant]

REACTIONS (1)
  - Hepatitis acute [None]
